FAERS Safety Report 20403918 (Version 1)
Quarter: 2022Q1

REPORT INFORMATION
  Report Type: Spontaneous
  Country: QA (occurrence: QA)
  Receive Date: 20220131
  Receipt Date: 20220131
  Transmission Date: 20220423
  Serious: Yes (Other)
  Sender: FDA-Public Use
  Company Number: QA-Accord-248955

PATIENT
  Age: 28 Year
  Sex: Male

DRUGS (2)
  1. AMITRIPTYLINE [Suspect]
     Active Substance: AMITRIPTYLINE
     Indication: Psychotherapy
     Dosage: 10MG AT BEDTIME, INCREASED TO 25MG AT BEDTIME, DOSES OF AMITRIPTYLINE 35 TO 50MG
  2. BUSPIRONE HYDROCHLORIDE [Suspect]
     Active Substance: BUSPIRONE HYDROCHLORIDE
     Indication: Irritable bowel syndrome
     Dosage: TAILORED TO 10 MG IN THE MORNING, 5MG IN THE AFTERNOON, AND 10MG AT BEDTIME.

REACTIONS (3)
  - Dizziness [Recovering/Resolving]
  - Constipation [Unknown]
  - Irritable bowel syndrome [Recovering/Resolving]
